FAERS Safety Report 15615171 (Version 2)
Quarter: 2018Q4

REPORT INFORMATION
  Report Type: Spontaneous
  Country: CN (occurrence: CN)
  Receive Date: 20181114
  Receipt Date: 20181129
  Transmission Date: 20190205
  Serious: Yes (Other)
  Sender: FDA-Public Use
  Company Number: CN-B.I. PHARMACEUTICALS,INC./RIDGEFIELD-2018-BI-054495

PATIENT
  Age: 80 Year
  Sex: Male
  Weight: 40 kg

DRUGS (4)
  1. BETALOC [Concomitant]
     Active Substance: METOPROLOL TARTRATE
     Indication: HYPERTENSION
     Route: 065
  2. APROVEL [Concomitant]
     Active Substance: IRBESARTAN
     Indication: HYPERTENSION
     Route: 065
  3. PRADAXA [Suspect]
     Active Substance: DABIGATRAN ETEXILATE MESYLATE
     Indication: ARRHYTHMIA PROPHYLAXIS
     Route: 048
  4. TOPROL XL [Concomitant]
     Active Substance: METOPROLOL SUCCINATE
     Indication: HYPERTENSION
     Route: 065

REACTIONS (10)
  - Activated partial thromboplastin time prolonged [Unknown]
  - Pharyngitis [Not Recovered/Not Resolved]
  - Oedema peripheral [Recovering/Resolving]
  - Toothache [Not Recovered/Not Resolved]
  - Breast pain [Unknown]
  - Prothrombin time prolonged [Unknown]
  - Mouth ulceration [Not Recovered/Not Resolved]
  - Thrombin time prolonged [Unknown]
  - Chest discomfort [Recovering/Resolving]
  - Cardiac failure [Unknown]

NARRATIVE: CASE EVENT DATE: 20181122
